FAERS Safety Report 20688904 (Version 1)
Quarter: 2022Q2

REPORT INFORMATION
  Report Type: Other
  Country: BE (occurrence: BE)
  Receive Date: 20220408
  Receipt Date: 20220408
  Transmission Date: 20220721
  Serious: Yes (Death, Life-Threatening, Other)
  Sender: FDA-Public Use
  Company Number: BE-ROCHE-2976197

PATIENT

DRUGS (3)
  1. CHLORAMBUCIL [Suspect]
     Active Substance: CHLORAMBUCIL
     Indication: Chronic lymphocytic leukaemia
     Dosage: UNK
     Route: 065
  2. ATEZOLIZUMAB [Suspect]
     Active Substance: ATEZOLIZUMAB
     Indication: Progressive multifocal leukoencephalopathy
     Dosage: 1200 MG, 1 DOSE 3 WEEKS
     Route: 065
  3. OBINUTUZUMAB [Suspect]
     Active Substance: OBINUTUZUMAB
     Indication: Chronic lymphocytic leukaemia
     Dosage: UNK
     Route: 042

REACTIONS (3)
  - Progressive multifocal leukoencephalopathy [Fatal]
  - Immune system disorder [Recovering/Resolving]
  - Immune reconstitution inflammatory syndrome [Recovering/Resolving]
